FAERS Safety Report 8031334-X (Version None)
Quarter: 2012Q1

REPORT INFORMATION
  Report Type: 
  Country: None (occurrence: None)
  Receive Date: 20120109
  Receipt Date: 20120104
  Transmission Date: 20120608
  Serious: Yes (Hospitalization)
  Sender: FDA-Public Use
  Company Number: FR-GLAXOSMITHKLINE-B0772758A

PATIENT
  Sex: Female

DRUGS (12)
  1. FLUTICASONE PROPIONATE/SALMETEROL [Suspect]
     Indication: ASTHMA
     Dosage: 4PUFF PER DAY
     Route: 055
  2. ALENDRONATE SODIUM [Suspect]
     Dosage: 1TAB WEEKLY
     Route: 048
  3. ZOPICLONE [Suspect]
     Dosage: 1UNIT PER DAY
     Route: 048
  4. RHINOCORT [Suspect]
     Dosage: 2SPR PER DAY
     Route: 045
  5. DESLORATADINE [Suspect]
     Dosage: 5MG PER DAY
     Route: 048
  6. SINGULAIR [Suspect]
     Dosage: 10MG PER DAY
     Route: 048
  7. ALDALIX [Suspect]
     Dosage: 1CAP PER DAY
     Route: 048
  8. ACETAMINOPHEN [Suspect]
     Dosage: 1000MG THREE TIMES PER DAY
     Route: 048
  9. MOVIPREP [Suspect]
     Dosage: 3SAC PER DAY
     Route: 048
  10. GINKOR FORT [Suspect]
     Dosage: 1UNIT TWICE PER DAY
     Route: 048
  11. ACETAMINOPHEN [Suspect]
     Dosage: 6TAB PER DAY
     Route: 048
     Dates: end: 20111106
  12. CALCIUM CARBONATE [Suspect]
     Dosage: 500MG TWICE PER DAY
     Route: 048
     Dates: end: 20111106

REACTIONS (1)
  - CONFUSIONAL STATE [None]
